FAERS Safety Report 16325481 (Version 1)
Quarter: 2019Q2

REPORT INFORMATION
  Report Type: Spontaneous
  Country: US (occurrence: US)
  Receive Date: 20190411
  Receipt Date: 20190411
  Transmission Date: 20190711
  Serious: Yes (Hospitalization)
  Sender: FDA-Public Use
  Company Number: None

PATIENT
  Age: 61 Year
  Sex: Male

DRUGS (19)
  1. CIPROFLOX [Concomitant]
     Active Substance: CIPROFLOXACIN HYDROCHLORIDE
  2. TIMOLOL SOL [Concomitant]
  3. RANITIDINE. [Concomitant]
     Active Substance: RANITIDINE
  4. METOPROLOL TAR [Concomitant]
     Active Substance: METOPROLOL TARTRATE
  5. CAPECITABINE. [Suspect]
     Active Substance: CAPECITABINE
     Indication: COLON CANCER
     Dosage: ?          OTHER FREQUENCY:BID DAYS 1-14;?
     Route: 048
     Dates: start: 20180911
  6. RAMIPRIL. [Concomitant]
     Active Substance: RAMIPRIL
  7. CAPECITABINE. [Suspect]
     Active Substance: CAPECITABINE
  8. BYSTOLIC [Concomitant]
     Active Substance: NEBIVOLOL HYDROCHLORIDE
  9. PROCTO-MED [Concomitant]
  10. TEMOZOLOMIDE. [Concomitant]
     Active Substance: TEMOZOLOMIDE
  11. CREON [Concomitant]
     Active Substance: PANCRELIPASE AMYLASE\PANCRELIPASE LIPASE\PANCRELIPASE PROTEASE
  12. PREDNISONE. [Concomitant]
     Active Substance: PREDNISONE
  13. GLIPIZIDE. [Concomitant]
     Active Substance: GLIPIZIDE
  14. ENSTILAR AER [Concomitant]
  15. VECTICAL OIN [Concomitant]
  16. ENOXAPARIN [Concomitant]
     Active Substance: ENOXAPARIN
  17. AMLODIPINE [Concomitant]
     Active Substance: AMLODIPINE BESYLATE
  18. POT CHLORIDE [Concomitant]
     Active Substance: POTASSIUM CHLORIDE
  19. OCTREOTIDE. [Concomitant]
     Active Substance: OCTREOTIDE

REACTIONS (2)
  - Nervous system disorder [None]
  - Plasmapheresis [None]

NARRATIVE: CASE EVENT DATE: 2019
